FAERS Safety Report 19577599 (Version 4)
Quarter: 2021Q4

REPORT INFORMATION
  Report Type: Report from Study
  Country: AR (occurrence: AR)
  Receive Date: 20210719
  Receipt Date: 20211108
  Transmission Date: 20220303
  Serious: Yes (Death, Hospitalization, Other)
  Sender: FDA-Public Use
  Company Number: AR-PINT-2021-NERATINIB-099

PATIENT

DRUGS (5)
  1. NERLYNX [Suspect]
     Active Substance: NERATINIB
     Indication: HER2 positive breast cancer
     Dosage: 240 MG, DAILY
     Route: 048
     Dates: start: 20210528, end: 20210614
  2. NERLYNX [Suspect]
     Active Substance: NERATINIB
     Dosage: 200 MG, DAILY
     Route: 048
     Dates: start: 20210615, end: 2021
  3. LOPERAMIDA VANNIER [Concomitant]
     Indication: Prophylaxis against diarrhoea
     Dosage: UNK
  4. SUPRASEC [Concomitant]
     Indication: Prophylaxis against diarrhoea
  5. CAPECITABINE [Concomitant]
     Active Substance: CAPECITABINE
     Indication: Product used for unknown indication
     Dosage: UNK

REACTIONS (3)
  - Cerebrovascular accident [Unknown]
  - Hospitalisation [Unknown]
  - Disease progression [Fatal]

NARRATIVE: CASE EVENT DATE: 20210101
